FAERS Safety Report 7928240-5 (Version None)
Quarter: 2011Q4

REPORT INFORMATION
  Report Type: 
  Country: None (occurrence: None)
  Receive Date: 20111118
  Receipt Date: 20111114
  Transmission Date: 20120403
  Serious: Yes (Other)
  Sender: FDA-Public Use
  Company Number: US-ROCHE-1013113

PATIENT
  Age: 65 Year
  Sex: Male

DRUGS (4)
  1. BEVACIZUMAB [Suspect]
     Indication: PROSTATE CANCER
  2. SORAFENIB [Suspect]
     Indication: PROSTATE CANCER
     Dates: start: 20080501, end: 20100601
  3. ESTRAMUSTINE [Concomitant]
  4. DOCETAXEL [Suspect]
     Indication: PROSTATE CANCER

REACTIONS (2)
  - OSTEONECROSIS OF JAW [None]
  - JAW FRACTURE [None]
